FAERS Safety Report 5657502-X (Version None)
Quarter: 2008Q1

REPORT INFORMATION
  Report Type: 
  Country: None (occurrence: None)
  Receive Date: 20080310
  Receipt Date: 20080225
  Transmission Date: 20080703
  Serious: Yes (Hospitalization)
  Sender: FDA-Public Use
  Company Number: US-ELI_LILLY_AND_COMPANY-US200802006236

PATIENT
  Age: 36 Year
  Sex: Male

DRUGS (2)
  1. OLANZAPINE [Suspect]
     Dosage: 700 MG, UNK
  2. SERTRALINE [Concomitant]

REACTIONS (6)
  - COORDINATION ABNORMAL [None]
  - DRUG TOXICITY [None]
  - INTENTIONAL OVERDOSE [None]
  - MENTAL STATUS CHANGES [None]
  - NEUROMYOPATHY [None]
  - SEROTONIN SYNDROME [None]
